FAERS Safety Report 5047250-1 (Version None)
Quarter: 2006Q3

REPORT INFORMATION
  Report Type: 
  Country: None (occurrence: None)
  Receive Date: 20060703
  Receipt Date: 20060620
  Transmission Date: 20061208
  Serious: Yes (Hospitalization)
  Sender: FDA-Public Use
  Company Number: 2006RR-02724

PATIENT
  Age: 63 Year
  Sex: Male

DRUGS (3)
  1. AMOXICILLIN-ACIDO CLAVULANICO CINFA 500/125MG EFG(CLAVULANIC ACID, AMO [Suspect]
     Indication: UPPER RESPIRATORY TRACT INFECTION
     Dosage: 500 MG, TID
  2. DOXAZOSIN (DOXAZOSIN) [Concomitant]
  3. METHYLPREDNISOLONE [Concomitant]

REACTIONS (2)
  - CHOLESTASIS [None]
  - HEPATIC STEATOSIS [None]
